FAERS Safety Report 5636848-5 (Version None)
Quarter: 2008Q1

REPORT INFORMATION
  Report Type: 
  Country: None (occurrence: None)
  Receive Date: 20080225
  Receipt Date: 20080221
  Transmission Date: 20080703
  Serious: Yes (Death)
  Sender: FDA-Public Use
  Company Number: DE-JNJFOC-20080204635

PATIENT
  Sex: Female

DRUGS (21)
  1. RISPERDAL [Suspect]
     Indication: DEPRESSION
     Dosage: FIRST DAY 2 MG PER DAY, SECOND DAY 4 MG PER DAY AND SO ON
  2. CIPRAMIL [Suspect]
     Indication: DEPRESSION
     Dosage: FIRST DAY 20 MG PER DAY, SECOND DAY 40 MG PER DAY AND SO ON
  3. PREDNISOLONE [Suspect]
     Indication: SYSTEMIC LUPUS ERYTHEMATOSUS
     Dosage: FIRST DAY 70 MG PER DAY, SECOND DAY 50 MG PER DAY, THIRD DAY 40 MG AND SO ON
  4. ENDOXAN [Suspect]
     Indication: SYSTEMIC LUPUS ERYTHEMATOSUS
  5. MESNA [Suspect]
     Indication: PROPHYLAXIS
     Route: 042
  6. FOLIC ACID [Suspect]
     Indication: MEDICAL DIET
     Route: 065
  7. CLEXANE [Suspect]
     Indication: THROMBOSIS PROPHYLAXIS
     Route: 058
  8. AUGMENTIN '125' [Suspect]
     Indication: DRUG USE FOR UNKNOWN INDICATION
     Route: 065
  9. IMUREK [Concomitant]
     Indication: SYSTEMIC LUPUS ERYTHEMATOSUS
  10. DECORTIN [Concomitant]
     Indication: SYSTEMIC LUPUS ERYTHEMATOSUS
     Dosage: FIRST DAY 70 MG, SECOND DAY 60 MG, THIRD DAY 50 MG PER DAY AND SO ON
  11. VITAMINE B12 [Concomitant]
     Indication: VITAMIN SUPPLEMENTATION
     Route: 030
  12. ESPUMISAN [Concomitant]
     Route: 065
  13. FORTIMEL [Concomitant]
     Indication: ENTERAL NUTRITION
     Route: 065
  14. PANTOZOL [Concomitant]
     Indication: GASTROINTESTINAL DISORDER THERAPY
     Route: 065
  15. CALCIMAGON [Concomitant]
     Indication: MINERAL SUPPLEMENTATION
     Route: 065
  16. DIPIPERONE [Concomitant]
     Route: 048
  17. DIPIPERONE [Concomitant]
     Indication: RESTLESSNESS
     Route: 048
  18. FENISTIL [Concomitant]
     Indication: PRURITUS
     Dosage: FIRST DAY 80 DROPS PER DAY, SECOND DAY 60 DROPS PER DAY AND SO ON
     Route: 048
  19. KALINOR [Concomitant]
     Indication: MINERAL SUPPLEMENTATION
  20. DIPIDOLOR [Concomitant]
     Indication: PAIN
     Route: 058
  21. DECAPEPTYL [Concomitant]
     Route: 058

REACTIONS (3)
  - RASH [None]
  - STEVENS-JOHNSON SYNDROME [None]
  - TOXIC EPIDERMAL NECROLYSIS [None]
